FAERS Safety Report 15491059 (Version 2)
Quarter: 2018Q4

REPORT INFORMATION
  Report Type: Report from Study
  Country: AU (occurrence: AU)
  Receive Date: 20181012
  Receipt Date: 20181029
  Transmission Date: 20190205
  Serious: Yes (Hospitalization, Other)
  Sender: FDA-Public Use
  Company Number: AU-REGENERON PHARMACEUTICALS, INC.-2018-39598

PATIENT

DRUGS (5)
  1. EYLEA [Suspect]
     Active Substance: AFLIBERCEPT
     Indication: NEOVASCULAR AGE-RELATED MACULAR DEGENERATION
     Dosage: 1 DF, ONCE; RIGHT EYE (1ST INJECTION)
     Route: 031
     Dates: start: 20180601, end: 20180601
  2. EYLEA [Suspect]
     Active Substance: AFLIBERCEPT
     Dosage: 1 DF, ONCE; RIGHT EYE (2ND INJECTION)
     Route: 031
     Dates: start: 20180625, end: 20180625
  3. EYLEA [Suspect]
     Active Substance: AFLIBERCEPT
     Dosage: 1 DF, ONCE; RIGHT EYE (4TH INJECTION)
     Route: 031
     Dates: start: 20181010, end: 20181010
  4. EYLEA [Suspect]
     Active Substance: AFLIBERCEPT
     Dosage: RIGHT EYE
     Route: 031
  5. EYLEA [Suspect]
     Active Substance: AFLIBERCEPT
     Dosage: 1 DF, ONCE; RIGHT EYE (3RD INJECTION)
     Route: 031
     Dates: start: 20180912, end: 20180912

REACTIONS (7)
  - Ureteral neoplasm [Unknown]
  - Inappropriate schedule of product administration [Unknown]
  - Vitreous haemorrhage [Unknown]
  - Retinal haemorrhage [Not Recovered/Not Resolved]
  - Visual impairment [Unknown]
  - Retinal haemorrhage [Unknown]
  - Blindness unilateral [Not Recovered/Not Resolved]

NARRATIVE: CASE EVENT DATE: 20180625
